FAERS Safety Report 4389333-5 (Version None)
Quarter: 2004Q2

REPORT INFORMATION
  Report Type: 
  Country: None (occurrence: None)
  Receive Date: 20040630
  Receipt Date: 20040617
  Transmission Date: 20050107
  Serious: Yes (Other)
  Sender: FDA-Public Use
  Company Number: 2004220021GB

PATIENT
  Sex: Male
  Weight: 70 kg

DRUGS (3)
  1. XALATAN [Suspect]
     Indication: GLAUCOMA
     Dosage: 1 GTT, QD, OPHTHALMIC
     Route: 047
     Dates: start: 20031201, end: 20040501
  2. FLOMAX MR (TAMSULOSIN HYDROCHLORIDE) [Concomitant]
  3. CO-CODAMOL [Concomitant]

REACTIONS (2)
  - SKIN REACTION [None]
  - WHEEZING [None]
